FAERS Safety Report 21813205 (Version 2)
Quarter: 2023Q1

REPORT INFORMATION
  Report Type: Spontaneous
  Country: DE (occurrence: DE)
  Receive Date: 20230103
  Receipt Date: 20230119
  Transmission Date: 20230418
  Serious: Yes (Other)
  Sender: FDA-Public Use
  Company Number: DE-EMBRYOTOX-202119415

PATIENT
  Age: 1 Day
  Sex: Female
  Weight: 3.27 kg

DRUGS (3)
  1. CLOBAZAM [Suspect]
     Active Substance: CLOBAZAM
     Indication: Anxiety disorder
     Dosage: 5 MG, QD
     Route: 064
     Dates: start: 20210215, end: 20211119
  2. LAMOTRIGINE [Suspect]
     Active Substance: LAMOTRIGINE
     Indication: Epilepsy
     Dosage: 500 MG, QD (500 [MG/D ]/ 300-0-200MG DAILY)
     Route: 064
     Dates: start: 20210215, end: 20211119
  3. LEVOTHYROXINE [Concomitant]
     Active Substance: LEVOTHYROXINE
     Indication: Hypothyroidism
     Dosage: UNK
     Route: 064
     Dates: start: 20210215, end: 20211119

REACTIONS (2)
  - Oxygen saturation decreased [Recovering/Resolving]
  - Foetal exposure during pregnancy [Unknown]

NARRATIVE: CASE EVENT DATE: 20211101
